FAERS Safety Report 5037430-3 (Version None)
Quarter: 2006Q2

REPORT INFORMATION
  Report Type: 
  Country: None (occurrence: None)
  Receive Date: 20060601
  Receipt Date: 20060207
  Transmission Date: 20061013
  Serious: No
  Sender: FDA-Public Use
  Company Number: 2006PV008287

PATIENT
  Age: 49 Year
  Sex: Female
  Weight: 113.3993 kg

DRUGS (1)
  1. BYETTA [Suspect]
     Indication: HYPOGLYCAEMIA
     Dosage: 5 MCG;BID;SC
     Route: 058
     Dates: start: 20060101

REACTIONS (3)
  - BLOOD GLUCOSE INCREASED [None]
  - NASOPHARYNGITIS [None]
  - STRESS [None]
